FAERS Safety Report 18382419 (Version 1)
Quarter: 2020Q4

REPORT INFORMATION
  Report Type: Spontaneous
  Country: US (occurrence: US)
  Receive Date: 20201014
  Receipt Date: 20201014
  Transmission Date: 20210114
  Serious: No
  Sender: FDA-Public Use
  Company Number: US-ASTRAZENECA-2020SF26809

PATIENT
  Sex: Female

DRUGS (2)
  1. TAGRISSO [Suspect]
     Active Substance: OSIMERTINIB
     Indication: LUNG CARCINOMA CELL TYPE UNSPECIFIED STAGE IV
     Dosage: DOSE UNKNOWN
     Route: 048
     Dates: start: 2018
  2. GABAPENTIN NERVE BLOCKER [Concomitant]
     Indication: HERPES VIRUS INFECTION

REACTIONS (1)
  - Herpes zoster [Unknown]
